FAERS Safety Report 6108285-0 (Version None)
Quarter: 2009Q1

REPORT INFORMATION
  Report Type: 
  Country: None (occurrence: None)
  Receive Date: 20090309
  Receipt Date: 20090130
  Transmission Date: 20090719
  Serious: Yes (Death)
  Sender: FDA-Public Use
  Company Number: US-TYCO HEALTHCARE/MALLINCKRODT-T200900360

PATIENT
  Age: 46 Year
  Sex: Female

DRUGS (7)
  1. METHYLIN [Suspect]
  2. METHADOSE [Suspect]
  3. VENLAFAXINE HCL [Suspect]
  4. BUPROPION HCL [Suspect]
  5. CHLORPHENIRAMINE MALEATE [Suspect]
  6. UNKNOWN DRUG [Suspect]
  7. TRAZODONE HCL [Suspect]

REACTIONS (2)
  - CARDIO-RESPIRATORY ARREST [None]
  - COMPLETED SUICIDE [None]
